FAERS Safety Report 19456308 (Version 1)
Quarter: 2021Q2

REPORT INFORMATION
  Report Type: Spontaneous
  Country: US (occurrence: US)
  Receive Date: 20210624
  Receipt Date: 20210624
  Transmission Date: 20210717
  Serious: Yes (Death)
  Sender: FDA-Public Use
  Company Number: None

PATIENT
  Age: 87 Year
  Sex: Female
  Weight: 73.8 kg

DRUGS (23)
  1. CASIRIVIMAB. [Suspect]
     Active Substance: CASIRIVIMAB
     Indication: CORONAVIRUS INFECTION
     Dosage: ?          OTHER FREQUENCY:ONCE;?
     Route: 042
     Dates: start: 20210604, end: 20210604
  2. ACETAMINOPHEN 650 MG ORAL [Concomitant]
     Dates: start: 20210604, end: 20210604
  3. ASPIRIN 81 MG [Concomitant]
     Active Substance: ASPIRIN
     Dates: start: 20210605, end: 20210606
  4. DEXAMETHASONE IV [Concomitant]
     Active Substance: DEXAMETHASONE
     Dates: start: 20210604, end: 20210607
  5. DIGOXIN 0.25 MG [Concomitant]
     Dates: start: 20210605, end: 20210606
  6. ALBUTEROL NEB [Concomitant]
     Active Substance: ALBUTEROL
     Dates: start: 20210604, end: 20210607
  7. ASCORBIC ACID 1000 MG [Concomitant]
     Dates: start: 20210605, end: 20210606
  8. ATORVASTATIN 10 MG [Concomitant]
     Active Substance: ATORVASTATIN
     Dates: start: 20210605, end: 20210605
  9. LORAZEPAM 0.5 MG TAB [Concomitant]
     Dates: start: 20210604, end: 20210604
  10. BUDESONIDE?FORMOTEROL INHALER [Concomitant]
     Dates: start: 20210604, end: 20210606
  11. METOPROLOL TARTRATE. [Concomitant]
     Active Substance: METOPROLOL TARTRATE
     Dates: start: 20210604, end: 20210605
  12. PIPERACILLIN/TAZOBACTAM [Concomitant]
     Active Substance: PIPERACILLIN SODIUM\TAZOBACTAM SODIUM
     Dates: start: 20210604, end: 20210607
  13. DILTIAZEM 60 MG TAB [Concomitant]
     Dates: start: 20210605, end: 20210606
  14. MONTELUKAST [Concomitant]
     Active Substance: MONTELUKAST SODIUM
     Dates: start: 20210604, end: 20210606
  15. RIVAROXABAN [Concomitant]
     Active Substance: RIVAROXABAN
     Dates: start: 20210605, end: 20210606
  16. ALLOPURINAL  300 MG [Concomitant]
     Dates: start: 20210605, end: 20210605
  17. SILDENAFIL. [Concomitant]
     Active Substance: SILDENAFIL
     Dates: start: 20210605, end: 20210606
  18. SPIRONOLACTONE. [Concomitant]
     Active Substance: SPIRONOLACTONE
     Dates: start: 20210605, end: 20210605
  19. PRAMIPEXOLE. [Concomitant]
     Active Substance: PRAMIPEXOLE
     Dates: start: 20210605, end: 20210606
  20. IMDEVIMAB. [Suspect]
     Active Substance: IMDEVIMAB
     Indication: CORONAVIRUS INFECTION
     Dosage: ?          OTHER FREQUENCY:ONCE;?
     Route: 042
     Dates: start: 20210604, end: 20210604
  21. FERROUS SULFATE. [Concomitant]
     Active Substance: FERROUS SULFATE
     Dates: start: 20210605, end: 20210606
  22. PANTOPRAZOLE [Concomitant]
     Active Substance: PANTOPRAZOLE
     Dates: start: 20210604, end: 20210607
  23. SERTRALINE [Concomitant]
     Active Substance: SERTRALINE HYDROCHLORIDE
     Dates: start: 20210605, end: 20210605

REACTIONS (3)
  - Liver function test increased [None]
  - Renal failure [None]
  - Oxygen saturation decreased [None]

NARRATIVE: CASE EVENT DATE: 20210609
